FAERS Safety Report 8291807-1 (Version None)
Quarter: 2012Q2

REPORT INFORMATION
  Report Type: 
  Country: None (occurrence: None)
  Receive Date: 20120417
  Receipt Date: 20120413
  Transmission Date: 20120825
  Serious: No
  Sender: FDA-Public Use
  Company Number: US-TEVA-333627USA

PATIENT
  Sex: Female
  Weight: 86.26 kg

DRUGS (3)
  1. SERTRALINE HYDROCHLORIDE [Concomitant]
     Indication: ANXIETY
     Dates: start: 20090101
  2. PLAN B ONE-STEP [Suspect]
     Indication: POST COITAL CONTRACEPTION
     Dosage: 1.5 MILLIGRAM;
     Route: 048
     Dates: start: 20120331, end: 20120331
  3. CLARITIN [Concomitant]
     Indication: HYPERSENSITIVITY

REACTIONS (1)
  - DIZZINESS [None]
